FAERS Safety Report 10137753 (Version 3)
Quarter: 2014Q2

REPORT INFORMATION
  Report Type: Report from Study
  Country: RU (occurrence: RU)
  Receive Date: 20140429
  Receipt Date: 20140530
  Transmission Date: 20141212
  Serious: Yes (Hospitalization)
  Sender: FDA-Public Use
  Company Number: PHHY2014RU051989

PATIENT
  Age: 58 Year
  Sex: Female

DRUGS (5)
  1. ACLASTA [Suspect]
     Indication: OSTEOARTHRITIS
     Dosage: UNK
     Route: 042
     Dates: start: 201310
  2. ACLASTA [Suspect]
     Indication: POLYARTHRITIS
  3. ACLASTA [Suspect]
     Indication: OFF LABEL USE
  4. VAZAPROSTAN [Concomitant]
     Dosage: UNK UKN, UNK
  5. ACTOVEGIN [Concomitant]
     Dosage: UNK UKN, UNK

REACTIONS (2)
  - Humerus fracture [Unknown]
  - Pain [Unknown]
